FAERS Safety Report 4518989-9 (Version None)
Quarter: 2004Q4

REPORT INFORMATION
  Report Type: 
  Country: None (occurrence: None)
  Receive Date: 20041203
  Receipt Date: 20041203
  Transmission Date: 20050328
  Serious: Yes (Life-Threatening, Disabling)
  Sender: FDA-Public Use
  Company Number: None

PATIENT
  Age: 30 Year
  Sex: Male
  Weight: 85 kg

DRUGS (1)
  1. GEODON [Suspect]
     Dosage: ONE INJECTION INTRAMUSCULAR
     Route: 030

REACTIONS (10)
  - ABDOMINAL PAIN UPPER [None]
  - ARTHRALGIA [None]
  - DEPRESSION [None]
  - FEAR [None]
  - LOSS OF CONSCIOUSNESS [None]
  - MIGRAINE [None]
  - MUSCLE DISORDER [None]
  - MYALGIA [None]
  - NAUSEA [None]
  - SPEECH DISORDER [None]
